FAERS Safety Report 9357872 (Version 4)
Quarter: 2013Q3

REPORT INFORMATION
  Report Type: Report from Study
  Country: US (occurrence: US)
  Receive Date: 20130620
  Receipt Date: 20130717
  Transmission Date: 20140515
  Serious: Yes (Death, Hospitalization)
  Sender: FDA-Public Use
  Company Number: US-AMGEN-USACT2013041555

PATIENT
  Age: 69 Year
  Sex: Female
  Weight: 62.1 kg

DRUGS (4)
  1. PANITUMUMAB [Suspect]
     Indication: LUNG ADENOCARCINOMA
     Dosage: 900 MG, UNK
     Dates: start: 20130226
  2. CARBOPLATIN [Concomitant]
     Indication: LUNG ADENOCARCINOMA
     Dosage: 1500 MG, UNK
     Dates: start: 20130226
  3. TAXOL [Concomitant]
     Indication: LUNG ADENOCARCINOMA
     Dosage: 486 MG, UNK
     Dates: start: 20130226
  4. NALOXONE [Concomitant]
     Dosage: 400 MG, UNK
     Route: 042
     Dates: start: 20130518

REACTIONS (3)
  - Postoperative thoracic procedure complication [Fatal]
  - Respiratory failure [Fatal]
  - Pulmonary oedema [Recovering/Resolving]
